FAERS Safety Report 9631288 (Version 1)
Quarter: 2013Q4

REPORT INFORMATION
  Report Type: Spontaneous
  Country: US (occurrence: US)
  Receive Date: 20131018
  Receipt Date: 20131018
  Transmission Date: 20140711
  Serious: Yes (Other)
  Sender: FDA-Public Use
  Company Number: US-SA-2013SA103092

PATIENT
  Age: 68 Year
  Sex: Female

DRUGS (3)
  1. LANTUS [Suspect]
     Dosage: 30-40 UNITS DAILY
     Route: 051
  2. HUMALIN [Concomitant]
     Route: 065
  3. NOVOLIN R [Concomitant]
     Route: 065

REACTIONS (5)
  - Breast cancer [Unknown]
  - Pancreatic carcinoma [Unknown]
  - Malaise [Unknown]
  - Glycosylated haemoglobin increased [Unknown]
  - Blood glucose increased [Unknown]
